FAERS Safety Report 9788057 (Version 2)
Quarter: 2013Q4

REPORT INFORMATION
  Report Type: Spontaneous
  Country: BR (occurrence: BR)
  Receive Date: 20131230
  Receipt Date: 20131230
  Transmission Date: 20140711
  Serious: Yes (Other)
  Sender: FDA-Public Use
  Company Number: BR-PFIZER INC-2013252090

PATIENT
  Sex: Female

DRUGS (1)
  1. CELEBRA [Suspect]
     Indication: INFLAMMATION
     Dosage: 200 MG, 2X/DAY (ONE CAPSULE EVERY 12 HOURS)
     Route: 048
     Dates: start: 20130828, end: 20130829

REACTIONS (8)
  - Blood pressure decreased [Unknown]
  - Confusional state [Unknown]
  - Feeling abnormal [Unknown]
  - Insomnia [Unknown]
  - Chills [Unknown]
  - Nausea [Unknown]
  - Abdominal pain upper [Unknown]
  - Abdominal pain [Unknown]
